FAERS Safety Report 12370304 (Version 2)
Quarter: 2016Q2

REPORT INFORMATION
  Report Type: Spontaneous
  Country: US (occurrence: US)
  Receive Date: 20160516
  Receipt Date: 20160615
  Transmission Date: 20160815
  Serious: No
  Sender: FDA-Public Use
  Company Number: US-009507513-1605USA001856

PATIENT
  Sex: Female

DRUGS (1)
  1. NEXPLANON [Suspect]
     Active Substance: ETONOGESTREL
     Indication: CONTRACEPTION
     Dosage: 1 UNIT, UNK
     Route: 059
     Dates: start: 20150428

REACTIONS (4)
  - Fatigue [Recovering/Resolving]
  - Alopecia [Recovering/Resolving]
  - Menstruation irregular [Recovering/Resolving]
  - Device deployment issue [Recovered/Resolved]

NARRATIVE: CASE EVENT DATE: 20150428
